FAERS Safety Report 4350657-9 (Version None)
Quarter: 2004Q2

REPORT INFORMATION
  Report Type: 
  Country: None (occurrence: None)
  Receive Date: 20040427
  Receipt Date: 20040413
  Transmission Date: 20050107
  Serious: Yes (Hospitalization)
  Sender: FDA-Public Use
  Company Number: 04P-020-0256463-00

PATIENT
  Age: 38 Year
  Sex: Male

DRUGS (7)
  1. NORVIR [Suspect]
     Indication: HIV INFECTION
     Dosage: 200 MG, PER ORAL
     Route: 048
     Dates: start: 20031014
  2. TIPRANAVIR [Concomitant]
  3. SAQUINAVIR [Concomitant]
  4. CLARITHROMYCIN [Concomitant]
  5. STAVUDINE [Concomitant]
  6. PHENOBARBITAL TAB [Concomitant]
  7. CARBAMAZEPINE [Concomitant]

REACTIONS (10)
  - ANAEMIA [None]
  - CD4 LYMPHOCYTES DECREASED [None]
  - DIARRHOEA [None]
  - DRUG INEFFECTIVE [None]
  - FATIGUE [None]
  - GENERAL PHYSICAL HEALTH DETERIORATION [None]
  - MYCOBACTERIAL INFECTION [None]
  - PYREXIA [None]
  - TREATMENT NONCOMPLIANCE [None]
  - VIRAL LOAD INCREASED [None]
